FAERS Safety Report 6908458-0 (Version None)
Quarter: 2010Q3

REPORT INFORMATION
  Report Type: 
  Country: None (occurrence: None)
  Receive Date: 20100805
  Receipt Date: 20100728
  Transmission Date: 20110219
  Serious: Yes (Other)
  Sender: FDA-Public Use
  Company Number: DE-JNJFOC-20100708630

PATIENT
  Age: 40 Year
  Sex: Female

DRUGS (1)
  1. LEVOFLOXACIN [Suspect]
     Indication: URINARY TRACT INFECTION
     Route: 048

REACTIONS (5)
  - ANTINUCLEAR ANTIBODY [None]
  - HISTONE ANTIBODY [None]
  - LUPUS-LIKE SYNDROME [None]
  - PARAESTHESIA [None]
  - TRANSAMINASES INCREASED [None]
